FAERS Safety Report 9791350 (Version 6)
Quarter: 2015Q2

REPORT INFORMATION
  Report Type: Report from Study
  Country: CA (occurrence: CA)
  Receive Date: 20140101
  Receipt Date: 20150423
  Transmission Date: 20150821
  Serious: Yes (Hospitalization)
  Sender: FDA-Public Use
  Company Number: CA-ROCHE-1296005

PATIENT
  Age: 50 Year
  Sex: Female

DRUGS (13)
  1. MAXERAN [Concomitant]
     Active Substance: METOCLOPRAMIDE HYDROCHLORIDE
     Indication: NAUSEA
     Route: 065
     Dates: start: 20121015
  2. BENADRYL [Concomitant]
     Active Substance: DIPHENHYDRAMINE HYDROCHLORIDE
     Indication: COUGH
     Route: 065
     Dates: start: 20121015, end: 20141121
  3. BENADRYL [Concomitant]
     Active Substance: DIPHENHYDRAMINE HYDROCHLORIDE
     Route: 065
     Dates: start: 20131024, end: 20131027
  4. OBINUTUZUMAB [Suspect]
     Active Substance: OBINUTUZUMAB
     Indication: NON-HODGKIN^S LYMPHOMA UNSPECIFIED HISTOLOGY INDOLENT
     Dosage: DATE OF MOST RECENT DOSE OF OBINUTUZUMAB PRIOR TO AE ONSET: 18/OCT/2013?VOLUME 1000 ML (CONCENTRATIO
     Route: 042
     Dates: start: 20121015
  5. TYLENOL [Concomitant]
     Active Substance: ACETAMINOPHEN
     Indication: COUGH
     Route: 065
     Dates: start: 20121015, end: 20141121
  6. TYLENOL [Concomitant]
     Active Substance: ACETAMINOPHEN
     Indication: SINUS CONGESTION
     Route: 065
     Dates: start: 20131010, end: 20131219
  7. TYLENOL [Concomitant]
     Active Substance: ACETAMINOPHEN
     Indication: AXILLARY PAIN
     Route: 065
     Dates: start: 20131025, end: 20131025
  8. GRANISETRON [Concomitant]
     Active Substance: GRANISETRON
     Route: 065
     Dates: start: 20121015, end: 20141121
  9. BENDAMUSTINE [Suspect]
     Active Substance: BENDAMUSTINE
     Indication: NON-HODGKIN^S LYMPHOMA UNSPECIFIED HISTOLOGY INDOLENT
     Dosage: DATE OF MOST RECENT DOSE OF BENDAMUSTINE PRIOR TO AE ONSET: 12/MAR/2013
     Route: 042
     Dates: start: 20121015
  10. LOSEC [Concomitant]
     Active Substance: OMEPRAZOLE
     Indication: DYSPEPSIA
  11. APRICOT KERNELS [Concomitant]
     Route: 065
     Dates: start: 20130822
  12. LOSEC [Concomitant]
     Active Substance: OMEPRAZOLE
     Indication: DYSPEPSIA
     Route: 065
     Dates: start: 20121206
  13. WELLBUTRIN XL [Concomitant]
     Active Substance: BUPROPION HYDROCHLORIDE
     Indication: ANXIETY
     Route: 065
     Dates: end: 201211

REACTIONS (1)
  - Febrile neutropenia [Recovered/Resolved]

NARRATIVE: CASE EVENT DATE: 20131024
